FAERS Safety Report 4455870-8 (Version None)
Quarter: 2004Q3

REPORT INFORMATION
  Report Type: 
  Country: None (occurrence: None)
  Receive Date: 20040920
  Receipt Date: 20040913
  Transmission Date: 20050211
  Serious: Yes (Death)
  Sender: FDA-Public Use
  Company Number: USA-2004-0015807

PATIENT
  Age: 44 Year
  Sex: Female
  Weight: 78.9 kg

DRUGS (6)
  1. MORPHINE SULFATE [Suspect]
  2. MORPHINE SULFATE [Suspect]
  3. SERAX [Suspect]
  4. DIAZEPAM [Suspect]
  5. DESYREL [Suspect]
  6. CAFFEINE(CAFFEINE) [Suspect]

REACTIONS (16)
  - ARTERIOSCLEROSIS [None]
  - BLOOD CHLORIDE INCREASED [None]
  - BLOOD CREATININE DECREASED [None]
  - BLOOD POTASSIUM INCREASED [None]
  - BLOOD SODIUM INCREASED [None]
  - BLOOD UREA INCREASED [None]
  - CARDIAC ARREST [None]
  - CARDIOMEGALY [None]
  - COMA [None]
  - DRUG ABUSER [None]
  - DRUG INEFFECTIVE [None]
  - EMPHYSEMA [None]
  - FOCAL NODULAR HYPERPLASIA [None]
  - OVERDOSE [None]
  - RESPIRATORY ARREST [None]
  - SPLENOMEGALY [None]
